FAERS Safety Report 23787637 (Version 1)
Quarter: 2024Q2

REPORT INFORMATION
  Report Type: Spontaneous
  Country: US (occurrence: US)
  Receive Date: 20240426
  Receipt Date: 20240426
  Transmission Date: 20240716
  Serious: Yes (Hospitalization, Other)
  Sender: FDA-Public Use
  Company Number: US-MSNLABS-2024MSNLIT00952

PATIENT

DRUGS (1)
  1. HALOPERIDOL [Suspect]
     Active Substance: HALOPERIDOL
     Indication: Schizophrenia
     Dosage: OVERDOSE OF 80 MG OF HALOPERIDOL
     Route: 065

REACTIONS (3)
  - Encephalopathy [Recovered/Resolved]
  - Pericarditis [Recovered/Resolved]
  - Overdose [Recovered/Resolved]
